FAERS Safety Report 21681586 (Version 4)
Quarter: 2023Q1

REPORT INFORMATION
  Report Type: Spontaneous
  Country: US (occurrence: US)
  Receive Date: 20221205
  Receipt Date: 20230207
  Transmission Date: 20230418
  Serious: No
  Sender: FDA-Public Use
  Company Number: US-PFIZER INC-202201341645

PATIENT
  Age: 14 Year
  Sex: Male
  Weight: 58.74 kg

DRUGS (1)
  1. GENOTROPIN [Suspect]
     Active Substance: SOMATROPIN
     Indication: Growth hormone deficiency
     Dosage: 2.6MG AND 2.8MG ALTERNATING BY INJECTION

REACTIONS (3)
  - Drug dose omission by device [Not Recovered/Not Resolved]
  - Device information output issue [Unknown]
  - Device malfunction [Unknown]

NARRATIVE: CASE EVENT DATE: 20221124
